FAERS Safety Report 17523686 (Version 1)
Quarter: 2020Q1

REPORT INFORMATION
  Report Type: Spontaneous
  Country: DE (occurrence: DE)
  Receive Date: 20200310
  Receipt Date: 20200310
  Transmission Date: 20200409
  Serious: Yes (Hospitalization, Other)
  Sender: FDA-Public Use
  Company Number: DE-MYLANLABS-2020M1025636

PATIENT
  Age: 78 Year
  Sex: Male

DRUGS (10)
  1. PROMETHAZINE [Concomitant]
     Active Substance: PROMETHAZINE HYDROCHLORIDE
     Dosage: 25 MILLIGRAM, QD(1X25MG)
     Route: 048
     Dates: end: 20200127
  2. NEUPRO [Suspect]
     Active Substance: ROTIGOTINE
     Indication: PARKINSON^S DISEASE
     Dosage: UNK
     Dates: start: 20200110, end: 20200122
  3. XARELTO [Concomitant]
     Active Substance: RIVAROXABAN
     Indication: ANTICOAGULANT THERAPY
     Dosage: 20 MILLIGRAM, QD(1X20MG)
     Route: 048
     Dates: end: 20200127
  4. TROSPIUM [Concomitant]
     Active Substance: TROSPIUM
     Dosage: UNK(30MG)
     Route: 048
  5. SPIRONOLACTON [Concomitant]
     Active Substance: SPIRONOLACTONE
     Indication: POLYURIA
     Dosage: 25 MILLIGRAM, QD(1X25MG)
     Route: 048
  6. ALLOPURINOL. [Concomitant]
     Active Substance: ALLOPURINOL
     Indication: HYPERURICAEMIA
     Dosage: 300 MILLIGRAM, QD(1X300MG)
     Route: 048
     Dates: end: 20200127
  7. RAMIPRIL. [Concomitant]
     Active Substance: RAMIPRIL
     Indication: HYPERTENSION
     Dosage: 2.5 MILLIGRAM, QD(1X2.5MG)
     Route: 048
     Dates: end: 20200127
  8. OXYCODON [Concomitant]
     Active Substance: OXYCODONE
     Indication: ANALGESIC THERAPY
     Dosage: 5 MILLIGRAM
     Route: 048
  9. DONEPEZIL. [Suspect]
     Active Substance: DONEPEZIL
     Indication: DEMENTIA
     Dosage: 5 MILLIGRAM, QD(1X5MG)
     Dates: start: 20200110, end: 20200122
  10. CITALOPRAM [Concomitant]
     Active Substance: CITALOPRAM HYDROBROMIDE
     Dosage: 20 MILLIGRAM, QD(1X20MG)
     Route: 048
     Dates: end: 20200127

REACTIONS (8)
  - Rash macular [Not Recovered/Not Resolved]
  - Erythema [Not Recovered/Not Resolved]
  - Stevens-Johnson syndrome [Not Recovered/Not Resolved]
  - Skin lesion [Not Recovered/Not Resolved]
  - Skin swelling [Not Recovered/Not Resolved]
  - Dermatitis allergic [Not Recovered/Not Resolved]
  - Rash [Not Recovered/Not Resolved]
  - Mucosal haemorrhage [Not Recovered/Not Resolved]

NARRATIVE: CASE EVENT DATE: 20200118
